FAERS Safety Report 25452376 (Version 1)
Quarter: 2025Q2

REPORT INFORMATION
  Report Type: Spontaneous
  Country: US (occurrence: None)
  Receive Date: 20250618
  Receipt Date: 20250618
  Transmission Date: 20250717
  Serious: Yes (Other)
  Sender: FDA-CTU
  Company Number: None

PATIENT
  Age: 71 Year
  Sex: Female

DRUGS (1)
  1. INGREZZA [Suspect]
     Active Substance: VALBENAZINE DITOSYLATE
     Dosage: FREQUENCY : DAILY;?
     Route: 048
     Dates: start: 20250611, end: 20250611

REACTIONS (3)
  - Hypoaesthesia [None]
  - Burning sensation [None]
  - Hypotension [None]
